FAERS Safety Report 5263096-3 (Version None)
Quarter: 2007Q1

REPORT INFORMATION
  Report Type: 
  Country: None (occurrence: None)
  Receive Date: 20070312
  Receipt Date: 20070228
  Transmission Date: 20070707
  Serious: Yes (Life-Threatening, Hospitalization)
  Sender: FDA-Public Use
  Company Number: JP-PFIZER INC-2006131827

PATIENT
  Sex: Male

DRUGS (11)
  1. ALDACTONE [Suspect]
     Indication: HYPERTENSION
     Dosage: DAILY DOSE:50MG-FREQ:DAILY
     Route: 048
     Dates: start: 20060919, end: 20060922
  2. RISPERDAL [Suspect]
     Route: 042
     Dates: start: 20060913, end: 20060922
  3. RISPERDAL [Suspect]
     Route: 048
     Dates: start: 20060923, end: 20060928
  4. GASTER [Suspect]
     Route: 042
     Dates: start: 20060901, end: 20060916
  5. GASTER [Suspect]
     Route: 048
     Dates: start: 20060916, end: 20060927
  6. STRONG NEO-MINOPHAGEN C [Suspect]
     Route: 042
     Dates: start: 20060904, end: 20060925
  7. CIPROFLOXACIN [Suspect]
     Indication: PNEUMONIA
     Route: 042
     Dates: start: 20060911, end: 20060921
  8. LASIX [Suspect]
     Route: 048
     Dates: start: 20060915, end: 20060927
  9. PREDONINE [Concomitant]
     Indication: PERIPHERAL CIRCULATORY FAILURE
     Route: 042
     Dates: start: 20060913, end: 20060925
  10. ENTERONON R [Concomitant]
     Indication: DISBACTERIOSIS
     Route: 048
     Dates: start: 20060916, end: 20060927
  11. DIPRIVAN [Concomitant]
     Route: 042
     Dates: start: 20060914, end: 20060922

REACTIONS (1)
  - TOXIC EPIDERMAL NECROLYSIS [None]
